FAERS Safety Report 10185885 (Version 3)
Quarter: 2014Q2

REPORT INFORMATION
  Report Type: Spontaneous
  Country: ES (occurrence: ES)
  Receive Date: 20140521
  Receipt Date: 20140604
  Transmission Date: 20141212
  Serious: Yes (Hospitalization)
  Sender: FDA-Public Use
  Company Number: PHHY2014ES061053

PATIENT
  Age: 34 Year
  Sex: Female

DRUGS (1)
  1. GILENYA [Suspect]
     Indication: MULTIPLE SCLEROSIS
     Dosage: 0.5 MG, QD
     Route: 048

REACTIONS (4)
  - Congestive cardiomyopathy [Recovered/Resolved]
  - Cardiogenic shock [Recovered/Resolved]
  - Multiple sclerosis relapse [Recovering/Resolving]
  - Neurological symptom [Recovering/Resolving]
